FAERS Safety Report 5921368-0 (Version None)
Quarter: 2008Q4

REPORT INFORMATION
  Report Type: 
  Country: None (occurrence: None)
  Receive Date: 20081014
  Receipt Date: 20081001
  Transmission Date: 20090506
  Serious: Yes (Life-Threatening)
  Sender: FDA-Public Use
  Company Number: 004684

PATIENT
  Age: 43 Year
  Sex: Male

DRUGS (5)
  1. BUSULFEX [Suspect]
     Indication: STEM CELL TRANSPLANT
  2. FLUDARABINE PHOSPHATE [Concomitant]
  3. CYCLOSPORINE [Concomitant]
  4. FILGRASTIM (FILGRASTIM) [Concomitant]
  5. METHOTREXATE [Concomitant]

REACTIONS (5)
  - ACUTE GRAFT VERSUS HOST DISEASE [None]
  - BONE MARROW TRANSPLANT REJECTION [None]
  - CONVULSION [None]
  - CYSTITIS HAEMORRHAGIC [None]
  - VENOOCCLUSIVE LIVER DISEASE [None]
